FAERS Safety Report 24334685 (Version 1)
Quarter: 2024Q3

REPORT INFORMATION
  Report Type: Spontaneous
  Country: HK (occurrence: HK)
  Receive Date: 20240918
  Receipt Date: 20240918
  Transmission Date: 20241016
  Serious: Yes (Hospitalization, Other)
  Sender: BRISTOL MYERS SQUIBB
  Company Number: HK-BRISTOL-MYERS SQUIBB COMPANY-2024-145274

PATIENT
  Age: 79 Year
  Sex: Male

DRUGS (3)
  1. NIVOLUMAB [Suspect]
     Active Substance: NIVOLUMAB
     Indication: Neoplasm
     Dosage: 3 CYCLES
  2. CARBOPLATIN [Suspect]
     Active Substance: CARBOPLATIN
     Indication: Neoplasm
  3. PACLITAXEL [Suspect]
     Active Substance: PACLITAXEL
     Indication: Neoplasm

REACTIONS (5)
  - Post procedural haemorrhage [Recovering/Resolving]
  - Post procedural infection [Recovering/Resolving]
  - Post procedural sepsis [Recovering/Resolving]
  - Cardiac function disturbance postoperative [Recovering/Resolving]
  - Chronic obstructive pulmonary disease [Recovering/Resolving]
